FAERS Safety Report 10028757 (Version 2)
Quarter: 2014Q2

REPORT INFORMATION
  Report Type: Report from Study
  Country: TN (occurrence: TN)
  Receive Date: 20140321
  Receipt Date: 20140523
  Transmission Date: 20141212
  Serious: Yes (Death, Other)
  Sender: FDA-Public Use
  Company Number: TN-PFIZER INC-2014077747

PATIENT
  Age: 41 Year
  Sex: Female

DRUGS (5)
  1. CRIZOTINIB [Suspect]
     Indication: LUNG ADENOCARCINOMA
     Dosage: UNK
     Route: 048
     Dates: start: 20120530
  2. CRIZOTINIB [Suspect]
  3. CRIZOTINIB [Suspect]
  4. CARBOPLATIN [Concomitant]
     Indication: LUNG ADENOCARCINOMA
  5. PACLITAXEL [Concomitant]
     Indication: LUNG ADENOCARCINOMA

REACTIONS (11)
  - Deafness [Unknown]
  - Disease progression [Fatal]
  - Lung adenocarcinoma [Fatal]
  - Pulmonary embolism [Unknown]
  - Decreased appetite [Unknown]
  - Dysphagia [Unknown]
  - Anosmia [Unknown]
  - Diplopia [Unknown]
  - Headache [Unknown]
  - Hypoaesthesia [Unknown]
  - Abdominal distension [Unknown]
